FAERS Safety Report 8608486 (Version 2)
Quarter: 2013Q3

REPORT INFORMATION
  Report Type: Spontaneous
  Country: US (occurrence: US)
  Receive Date: 20120611
  Receipt Date: 20130723
  Transmission Date: 20140515
  Serious: Yes (Hospitalization, Disabling)
  Sender: FDA-Public Use
  Company Number: US-ASTRAZENECA-2012SE36053

PATIENT
  Age: 45 Year
  Sex: Female
  Weight: 68 kg

DRUGS (15)
  1. NEXIUM [Suspect]
     Indication: GASTROOESOPHAGEAL REFLUX DISEASE
     Dosage: ONCE DAILY
     Route: 048
     Dates: start: 2001, end: 2012
  2. NEXIUM [Suspect]
     Indication: GASTROOESOPHAGEAL REFLUX DISEASE
     Route: 048
     Dates: start: 20120215
  3. OMEPRAZOLE [Suspect]
     Route: 048
     Dates: start: 20120803
  4. PREVACID [Concomitant]
  5. TUMS [Concomitant]
  6. ROLAIDS [Concomitant]
     Dosage: AS NEEDED
  7. TRAMADOL [Concomitant]
     Indication: PAIN
     Dosage: EVERY 8 HOURS AS NEEDED
  8. CLONAZEPAM [Concomitant]
     Route: 048
  9. DEXILANT [Concomitant]
     Dosage: 1 CAPSULE EVERY MORNING BEFORE BREAFAST
     Route: 048
  10. THIAMINE HCL [Concomitant]
     Route: 048
  11. HYDROCHLOROTHIAZIDE [Concomitant]
     Route: 048
  12. OXYCODONE HCL [Concomitant]
     Indication: PAIN
     Dosage: 1 TABLET EVRY 4-5 HOURS AS NEEDED
  13. AVELOX [Concomitant]
  14. KLONOPIN [Concomitant]
  15. SEROQUEL [Concomitant]
     Route: 048

REACTIONS (13)
  - Spinal osteoarthritis [Unknown]
  - Scoliosis [Unknown]
  - Back disorder [Unknown]
  - Pancreatitis [Unknown]
  - Multiple fractures [Unknown]
  - Cyst [Unknown]
  - Ankle fracture [Unknown]
  - Clavicle fracture [Unknown]
  - Depression [Unknown]
  - Hypertension [Unknown]
  - Arthritis [Unknown]
  - Chronic obstructive pulmonary disease [Unknown]
  - Osteoporosis [Unknown]
